FAERS Safety Report 8012941-7 (Version None)
Quarter: 2011Q4

REPORT INFORMATION
  Report Type: 
  Country: None (occurrence: None)
  Receive Date: 20111229
  Receipt Date: 20111222
  Transmission Date: 20120403
  Serious: Yes (Hospitalization)
  Sender: FDA-Public Use
  Company Number: FR-ASTELLAS-2011EU007953

PATIENT
  Sex: Female
  Weight: 64 kg

DRUGS (17)
  1. TACROLIMUS [Suspect]
     Dosage: 3.5 MG, UNKNOWN/D
     Route: 048
     Dates: start: 20091231, end: 20100223
  2. PROGRAF [Suspect]
     Indication: PROPHYLAXIS AGAINST TRANSPLANT REJECTION
     Dosage: 3 MG, UNKNOWN/D
     Route: 048
     Dates: start: 20100304, end: 20100306
  3. UVEDOSE [Concomitant]
     Indication: VITAMIN D DEFICIENCY
     Dosage: 100000 IU, OTHER
     Route: 048
     Dates: start: 20100225, end: 20110614
  4. TACROLIMUS [Suspect]
     Dosage: UNK
     Route: 048
     Dates: start: 20111006
  5. PHOSPHONEUROS [Concomitant]
     Indication: HYPOPHOSPHATAEMIA
     Dosage: 150 DROPS, UNKNOWN/D
     Route: 048
     Dates: start: 20100304, end: 20100520
  6. PROGRAF [Suspect]
     Dosage: 5 MG, UNKNOWN/D
     Route: 048
     Dates: start: 20100324, end: 20100520
  7. SPECIAFOLDINE [Concomitant]
     Indication: ANAEMIA
     Dosage: 5 MG, UNKNOWN/D
     Route: 048
     Dates: start: 20090901
  8. TACROLIMUS [Suspect]
     Dosage: 7 MG, UNKNOWN/D
     Route: 048
     Dates: start: 20091025, end: 20091216
  9. TACROLIMUS [Suspect]
     Dosage: 4 MG, UNKNOWN/D
     Route: 048
     Dates: start: 20091217, end: 20091230
  10. PROGRAF [Suspect]
     Dosage: 4 MG, UNKNOWN/D
     Route: 048
     Dates: start: 20100831, end: 20111006
  11. TACROLIMUS [Suspect]
     Indication: PROPHYLAXIS AGAINST TRANSPLANT REJECTION
     Dosage: 10 MG, UNKNOWN/D
     Route: 048
     Dates: start: 20090915, end: 20091005
  12. PROGRAF [Suspect]
     Dosage: 4 MG, UNKNOWN/D
     Route: 048
     Dates: start: 20100307, end: 20100323
  13. BISOPROLOL FUMARATE [Concomitant]
     Indication: HYPERTENSION
     Dosage: 5 MG, UNKNOWN/D
     Route: 048
     Dates: start: 20090915
  14. TACROLIMUS [Suspect]
     Dosage: 9 MG, UNKNOWN/D
     Route: 048
     Dates: start: 20091006, end: 20091014
  15. TACROLIMUS [Suspect]
     Dosage: 8 MG, UNKNOWN/D
     Route: 048
     Dates: start: 20091015, end: 20091024
  16. PROGRAF [Suspect]
     Dosage: 3 MG, UNKNOWN/D
     Route: 048
     Dates: start: 20100521, end: 20100831
  17. MYCOPHENOLATE MOFETIL (CELLCEPT) [Concomitant]
     Indication: PROPHYLAXIS AGAINST TRANSPLANT REJECTION
     Dosage: 1.5 G, UNKNOWN/D
     Route: 048
     Dates: start: 20090915

REACTIONS (3)
  - OVERDOSE [None]
  - ENCEPHALOPATHY [None]
  - PYELONEPHRITIS [None]
